FAERS Safety Report 18959914 (Version 2)
Quarter: 2022Q3

REPORT INFORMATION
  Report Type: Other
  Country: CA (occurrence: CA)
  Receive Date: 20210303
  Receipt Date: 20220816
  Transmission Date: 20221027
  Serious: Yes (Other)
  Sender: FDA-Public Use
  Company Number: CA-CELLTRION INC.-2021CA002494

PATIENT

DRUGS (7)
  1. RITUXIMAB [Suspect]
     Active Substance: RITUXIMAB
     Indication: Cholangitis
     Dosage: 1000 MG
     Route: 042
  2. ACETAMINOPHEN [Concomitant]
     Active Substance: ACETAMINOPHEN
     Indication: Premedication
  3. AZATHIOPRINE [Concomitant]
     Active Substance: AZATHIOPRINE
  4. METOPROLOL [Concomitant]
     Active Substance: METOPROLOL
  5. QUETIAPINE [Concomitant]
     Active Substance: QUETIAPINE
  6. RABEPRAZOLE [Concomitant]
     Active Substance: RABEPRAZOLE
  7. VENLAFAXINE [Concomitant]
     Active Substance: VENLAFAXINE HYDROCHLORIDE

REACTIONS (3)
  - Colon neoplasm [Unknown]
  - Colon cancer [Unknown]
  - Off label use [Unknown]
